FAERS Safety Report 9285467 (Version 4)
Quarter: 2013Q2

REPORT INFORMATION
  Report Type: Spontaneous
  Country: US (occurrence: US)
  Receive Date: 20130513
  Receipt Date: 20130628
  Transmission Date: 20140414
  Serious: Yes (Other)
  Sender: FDA-Public Use
  Company Number: US-PFIZER INC-2013141573

PATIENT
  Age: 80 Year
  Sex: Female

DRUGS (2)
  1. ZYVOX [Suspect]
     Indication: URINARY TRACT INFECTION
     Dosage: 600 MG, 2X/DAY
     Route: 048
     Dates: start: 20130308, end: 2013
  2. COUMADIN [Concomitant]
     Dosage: UNK

REACTIONS (4)
  - Oral candidiasis [Recovered/Resolved]
  - Tongue ulceration [Recovered/Resolved]
  - Dysphagia [Recovered/Resolved]
  - Drug ineffective [Unknown]
